FAERS Safety Report 9690395 (Version 2)
Quarter: 2013Q4

REPORT INFORMATION
  Report Type: Spontaneous
  Country: FR (occurrence: FR)
  Receive Date: 20131115
  Receipt Date: 20131115
  Transmission Date: 20140711
  Serious: Yes (Life-Threatening, Other)
  Sender: FDA-Public Use
  Company Number: FR-PFIZER INC-2013295001

PATIENT
  Age: 79 Year
  Sex: Female

DRUGS (9)
  1. OLMETEC [Suspect]
     Indication: HYPERTENSION
     Dosage: 40 MG, 1X/DAY
     Route: 048
     Dates: end: 20130623
  2. METFORMIN HCL [Suspect]
     Indication: TYPE 2 DIABETES MELLITUS
     Dosage: 1000 MG, 2X/DAY
     Route: 048
     Dates: end: 20130623
  3. ATORVASTATIN CALCIUM [Suspect]
     Dosage: 10 MG, DAILY
     Route: 065
  4. ATARAX [Suspect]
     Dosage: UNK
     Route: 065
  5. RILMENIDINE [Suspect]
     Dosage: 1 MG, DAILY
     Route: 065
  6. JANUVIA [Suspect]
     Dosage: 100 MG, DAILY
     Route: 065
  7. GLIMEPIRIDE [Suspect]
     Dosage: 1 MG, DAILY
     Route: 065
  8. CELIPROLOL [Suspect]
     Dosage: 200 MG, DAILY
     Route: 048
     Dates: end: 20130623
  9. FLECAINE [Suspect]
     Dosage: 100 MG, DAILY
     Route: 048
     Dates: end: 20130623

REACTIONS (7)
  - Hyperkalaemia [Recovered/Resolved]
  - Diarrhoea [Unknown]
  - Lactic acidosis [Unknown]
  - Cardiac arrest [Recovered/Resolved]
  - Renal failure acute [Recovered/Resolved]
  - Acute respiratory distress syndrome [Recovered/Resolved]
  - Condition aggravated [Recovered/Resolved]
